FAERS Safety Report 18106627 (Version 5)
Quarter: 2020Q4

REPORT INFORMATION
  Report Type: Spontaneous
  Country: JP (occurrence: JP)
  Receive Date: 20200803
  Receipt Date: 20201122
  Transmission Date: 20210113
  Serious: Yes (Hospitalization, Other)
  Sender: FDA-Public Use
  Company Number: JP-JNJFOC-20200745777

PATIENT
  Age: 82 Year
  Sex: Male
  Weight: 56.7 kg

DRUGS (19)
  1. SHAKUYAKUKANZOTO [Concomitant]
     Active Substance: HERBALS
     Dosage: AT BEDTIME
     Route: 048
  2. ACELIO [Concomitant]
     Active Substance: ACETAMINOPHEN
     Indication: PYREXIA
     Dosage: P.R.N
     Route: 042
     Dates: start: 20200818
  3. LACTEC [Concomitant]
     Active Substance: CALCIUM CHLORIDE ANHYDROUS\POTASSIUM CHLORIDE\SODIUM CHLORIDE\SODIUM LACTATE
     Indication: HYPOTENSION
     Dosage: DOSE UNKNOWN
     Route: 042
     Dates: start: 20200818, end: 20200818
  4. ISOTONIC SODIUM CHLORIDE SOLUTION [Concomitant]
     Active Substance: SODIUM CHLORIDE
     Indication: VEHICLE SOLUTION USE
     Dosage: DOSE UNKNOWN
     Route: 042
     Dates: start: 20200818
  5. SOLACET F [Concomitant]
     Active Substance: CALCIUM CHLORIDE\POTASSIUM CHLORIDE\SODIUM ACETATE\SODIUM CHLORIDE
     Indication: HYPOTENSION
     Dosage: DOSE UNKNOWN
     Route: 042
     Dates: start: 20180818, end: 20180828
  6. GASMOTIN [Concomitant]
     Active Substance: MOSAPRIDE CITRATE
     Indication: GASTROINTESTINAL MOTILITY DISORDER
     Dosage: AFTER MEALS
     Route: 048
     Dates: start: 20200821
  7. NOVOLIN R [Concomitant]
     Active Substance: INSULIN HUMAN
     Indication: DIABETES MELLITUS
     Dosage: DOSE UNKNOWN
     Route: 042
     Dates: start: 20200823
  8. BFLUID [Concomitant]
     Active Substance: AMINO ACIDS\DEXTROSE\ELECTROLYTES NOS\VITAMINS
     Indication: ELECTROLYTE SUBSTITUTION THERAPY
     Dosage: DOSE UNKNOWN
     Route: 042
     Dates: start: 20200820
  9. CEFTRIAXONE SODIUM HYDRATE [Suspect]
     Active Substance: CEFTRIAXONE SODIUM
     Indication: SEPSIS
     Route: 065
     Dates: start: 20200818, end: 20200825
  10. TRAZENTA [Concomitant]
     Active Substance: LINAGLIPTIN
     Indication: DIABETES MELLITUS
     Dosage: IN THE MORNING
     Route: 048
  11. LAXOBERON [Concomitant]
     Active Substance: SODIUM PICOSULFATE
     Indication: CONSTIPATION
     Dosage: DOSE UNKNOWN,P.R.N
     Route: 048
     Dates: start: 20200823
  12. ERLEADA [Suspect]
     Active Substance: APALUTAMIDE
     Indication: HORMONE-REFRACTORY PROSTATE CANCER
     Dosage: IN THE MORNING
     Route: 048
     Dates: start: 20200720, end: 20200825
  13. CALONAL [Concomitant]
     Active Substance: ACETAMINOPHEN
     Indication: PYREXIA
     Dosage: P.R.N
     Route: 048
     Dates: start: 20200822
  14. NORADRENALINE [Concomitant]
     Active Substance: NOREPINEPHRINE
     Indication: HYPOTENSION
     Dosage: DOSE UNKNOWN
     Route: 042
     Dates: start: 20200818, end: 20200819
  15. SILODOSIN OD [Concomitant]
     Indication: BENIGN PROSTATIC HYPERPLASIA
     Dosage: IN THE MORNING AND EVENING
     Route: 048
     Dates: start: 20191004
  16. ZACRAS [Concomitant]
     Active Substance: AMLODIPINE BESYLATE\AZILSARTAN
     Indication: HYPERTENSION
     Dosage: IN THE MORNING
     Route: 048
  17. BISOPROLOL [Concomitant]
     Active Substance: BISOPROLOL
     Indication: CARDIAC FAILURE CHRONIC
     Dosage: IN THE MORNING
     Route: 048
  18. AZUNOL                             /00317302/ [Concomitant]
     Indication: PRURITUS
     Dosage: DOSE UNKNOWN
     Route: 061
     Dates: start: 20200821
  19. GLUBES [Concomitant]
     Active Substance: MITIGLINIDE CALCIUM HYDRATE\VOGLIBOSE
     Indication: DIABETES MELLITUS
     Dosage: DOSE UNKNOWN
     Route: 048
     Dates: start: 20200824

REACTIONS (6)
  - Bladder tamponade [Recovered/Resolved]
  - Sepsis [Recovering/Resolving]
  - Urinary tract infection [Recovered/Resolved]
  - Hypokalaemia [Recovered/Resolved]
  - Rash [Recovered/Resolved]
  - Pyrexia [Recovered/Resolved]

NARRATIVE: CASE EVENT DATE: 20200727
